FAERS Safety Report 15127878 (Version 1)
Quarter: 2018Q3

REPORT INFORMATION
  Report Type: Spontaneous
  Country: US (occurrence: US)
  Receive Date: 20180710
  Receipt Date: 20180710
  Transmission Date: 20181010
  Serious: Yes (Other)
  Sender: FDA-Public Use
  Company Number: US-AKRON, INC.-2051693

PATIENT
  Sex: Male

DRUGS (1)
  1. THERATEARS LUBRICANT EYE DROPS [Suspect]
     Active Substance: CARBOXYMETHYLCELLULOSE SODIUM
     Route: 047

REACTIONS (4)
  - Eye infection [Recovered/Resolved]
  - Ocular hyperaemia [Recovering/Resolving]
  - Eye haemorrhage [Recovering/Resolving]
  - Vision blurred [Not Recovered/Not Resolved]
